FAERS Safety Report 4267987-1 (Version None)
Quarter: 2004Q1

REPORT INFORMATION
  Report Type: 
  Country: None (occurrence: None)
  Receive Date: 20040107
  Receipt Date: 20031029
  Transmission Date: 20041129
  Serious: No
  Sender: FDA-Public Use
  Company Number: 2003UW14099

PATIENT

DRUGS (1)
  1. DIPRIVAN [Suspect]

REACTIONS (1)
  - PULMONARY OEDEMA [None]
